FAERS Safety Report 9902803 (Version 1)
Quarter: 2014Q1

REPORT INFORMATION
  Report Type: Spontaneous
  Country: JP (occurrence: JP)
  Receive Date: 20140217
  Receipt Date: 20140217
  Transmission Date: 20141002
  Serious: No
  Sender: FDA-Public Use
  Company Number: PHHY2014JP018588

PATIENT
  Age: 67 Year
  Sex: Female

DRUGS (4)
  1. TASIGNA [Suspect]
     Dosage: 03 DF, QD
     Route: 048
     Dates: end: 20140210
  2. TASIGNA [Suspect]
     Dosage: 4 DF, QD
     Route: 048
     Dates: start: 20140211, end: 20140211
  3. TASIGNA [Suspect]
     Dosage: 03 DF, QD
     Route: 048
     Dates: start: 20140212
  4. MYSLEE [Concomitant]
     Dosage: UNK UKN, UNK

REACTIONS (3)
  - Electrocardiogram abnormal [Unknown]
  - Hyperbilirubinaemia [Unknown]
  - Overdose [Unknown]
